FAERS Safety Report 4355243-2 (Version None)
Quarter: 2004Q2

REPORT INFORMATION
  Report Type: 
  Country: None (occurrence: None)
  Receive Date: 20040504
  Receipt Date: 20040419
  Transmission Date: 20050107
  Serious: Yes (Death)
  Sender: FDA-Public Use
  Company Number: WAES 0403GBR00228

PATIENT
  Age: 85 Year
  Sex: Female

DRUGS (3)
  1. STROMECTOL [Suspect]
     Indication: ACARODERMATITIS
     Dosage: 3 MG/ 1X PO
     Route: 048
     Dates: start: 20040130, end: 20040130
  2. AMILORIDE HYDROCHLORIDE (+) FUROSEMIDE [Concomitant]
  3. LEVOTHYROXINE [Concomitant]

REACTIONS (1)
  - BRONCHOPNEUMONIA [None]
